FAERS Safety Report 9289979 (Version 2)
Quarter: 2013Q2

REPORT INFORMATION
  Report Type: Spontaneous
  Country: FR (occurrence: None)
  Receive Date: 20130510
  Receipt Date: 20130517
  Transmission Date: 20140414
  Serious: Yes (Hospitalization)
  Sender: FDA-Public Use
  Company Number: BACL20130004

PATIENT
  Age: 28 Year
  Sex: Female

DRUGS (6)
  1. BACLOFEN [Suspect]
     Indication: INTENTIONAL OVERDOSE
     Dosage: 1000 MG, 100 IN 1 D, ORAL
     Route: 048
  2. BACLOFEN [Suspect]
     Indication: ALCOHOL DETOXIFICATION
     Dosage: 1000 MG, 100 IN 1 D, ORAL
     Route: 048
  3. OXAZEPAM [Concomitant]
  4. PRAZEPAM [Concomitant]
  5. CITALOPRAM [Concomitant]
  6. LORMETAZEPAM [Concomitant]

REACTIONS (13)
  - Coma [None]
  - Cardiovascular disorder [None]
  - Poisoning deliberate [None]
  - Corneal reflex decreased [None]
  - Hypotonia [None]
  - Myoclonus [None]
  - Haemodynamic instability [None]
  - Hypotension [None]
  - Bradycardia [None]
  - Electrocardiogram QT prolonged [None]
  - Pneumonia aspiration [None]
  - Abnormal behaviour [None]
  - Persecutory delusion [None]
